FAERS Safety Report 8229737-3 (Version None)
Quarter: 2012Q1

REPORT INFORMATION
  Report Type: 
  Country: None (occurrence: None)
  Receive Date: 20120322
  Receipt Date: 20120321
  Transmission Date: 20120608
  Serious: Yes (Hospitalization, Disabling)
  Sender: FDA-Public Use
  Company Number: US-MERCK-1108USA02426

PATIENT
  Age: 62 Year
  Sex: Female

DRUGS (4)
  1. FOSAMAX PLUS D [Suspect]
     Indication: OSTEOPOROSIS PROPHYLAXIS
     Route: 048
     Dates: start: 19950101, end: 20080801
  2. FOSAMAX [Suspect]
     Indication: OSTEOPOROSIS
     Route: 048
     Dates: start: 19950101, end: 20080801
  3. FOSAMAX [Suspect]
     Indication: OSTEOPENIA
     Route: 048
     Dates: start: 19950101, end: 20080801
  4. FOSAMAX PLUS D [Suspect]
     Indication: OSTEOPOROSIS
     Route: 048
     Dates: start: 19950101, end: 20080801

REACTIONS (29)
  - FIBROMYALGIA [None]
  - CEREBRAL SMALL VESSEL ISCHAEMIC DISEASE [None]
  - SLEEP DISORDER [None]
  - TOOTH DISORDER [None]
  - DEPRESSION [None]
  - BONE DISORDER [None]
  - UPPER LIMB FRACTURE [None]
  - INTERVERTEBRAL DISC COMPRESSION [None]
  - TOOTHACHE [None]
  - CONTUSION [None]
  - ARTHRALGIA [None]
  - MALNUTRITION [None]
  - LACUNAR INFARCTION [None]
  - SPINAL COMPRESSION FRACTURE [None]
  - DENTAL CARIES [None]
  - GAIT DISTURBANCE [None]
  - FEMUR FRACTURE [None]
  - OSTEOPENIA [None]
  - ORAL INFECTION [None]
  - LEUKOCYTOSIS [None]
  - HYPERTENSION [None]
  - BLOOD CHOLESTEROL INCREASED [None]
  - FALL [None]
  - LOW TURNOVER OSTEOPATHY [None]
  - ANAEMIA [None]
  - ANXIETY [None]
  - CONFUSIONAL STATE [None]
  - PUBIS FRACTURE [None]
  - MUSCLE SPASMS [None]
